FAERS Safety Report 23760366 (Version 1)
Quarter: 2024Q2

REPORT INFORMATION
  Report Type: Spontaneous
  Country: ES (occurrence: ES)
  Receive Date: 20240419
  Receipt Date: 20240419
  Transmission Date: 20240716
  Serious: Yes (Death, Hospitalization, Other)
  Sender: FDA-Public Use
  Company Number: ES-ALKEM LABORATORIES LIMITED-ES-ALKEM-2024-07844

PATIENT
  Sex: Male

DRUGS (2)
  1. TACROLIMUS [Interacting]
     Active Substance: TACROLIMUS
     Indication: Immunosuppressant drug therapy
     Dosage: UNK
     Route: 065
  2. LOPINAVIR\RITONAVIR [Interacting]
     Active Substance: LOPINAVIR\RITONAVIR
     Indication: COVID-19
     Dosage: UNK, BID (TWICE DAILY) (400/100 MILLIGRAM)
     Route: 065

REACTIONS (5)
  - Drug interaction [Unknown]
  - Transplant rejection [Fatal]
  - Acute respiratory failure [Unknown]
  - COVID-19 [Unknown]
  - Acute kidney injury [Unknown]
